FAERS Safety Report 5869506-2 (Version None)
Quarter: 2008Q3

REPORT INFORMATION
  Report Type: 
  Country: None (occurrence: None)
  Receive Date: 20080904
  Receipt Date: 20080902
  Transmission Date: 20090109
  Serious: Yes (Hospitalization)
  Sender: FDA-Public Use
  Company Number: GB-SP-2008-02798

PATIENT
  Age: 68 Year
  Sex: Male

DRUGS (7)
  1. IMMUCYST [Suspect]
     Indication: BLADDER CANCER
     Route: 043
     Dates: start: 20080625, end: 20080731
  2. CLOPIDOGREL [Concomitant]
  3. FELODIPINE [Concomitant]
  4. LANSOPRAZOLE [Concomitant]
  5. LISINOPRIL [Concomitant]
  6. ACETAMINOPHEN [Concomitant]
  7. SIMVASTATIN [Concomitant]

REACTIONS (5)
  - ARTHRALGIA [None]
  - JOINT SWELLING [None]
  - MALAISE [None]
  - MUSCULOSKELETAL STIFFNESS [None]
  - MYALGIA [None]
